FAERS Safety Report 25857550 (Version 1)
Quarter: 2025Q3

REPORT INFORMATION
  Report Type: Report from Study
  Country: RU (occurrence: RU)
  Receive Date: 20250929
  Receipt Date: 20250929
  Transmission Date: 20251020
  Serious: Yes (Hospitalization, Other)
  Sender: SANOFI AVENTIS
  Company Number: RU-SA-2025SA286146

PATIENT
  Age: 35 Year
  Sex: Male
  Weight: 60 kg

DRUGS (2)
  1. ALEMTUZUMAB [Suspect]
     Active Substance: ALEMTUZUMAB
     Indication: Multiple sclerosis
     Route: 042
     Dates: start: 2022
  2. ALCOHOL [Suspect]
     Active Substance: ALCOHOL
     Dates: start: 2022

REACTIONS (2)
  - Loss of consciousness [Unknown]
  - Cerebrovascular accident [Unknown]

NARRATIVE: CASE EVENT DATE: 20220101
